FAERS Safety Report 19052264 (Version 1)
Quarter: 2021Q1

REPORT INFORMATION
  Report Type: Spontaneous
  Country: US (occurrence: US)
  Receive Date: 20210324
  Receipt Date: 20210324
  Transmission Date: 20210420
  Serious: No
  Sender: FDA-Public Use
  Company Number: US-SA-2021SA096974

PATIENT
  Age: 45 Year
  Sex: Female

DRUGS (4)
  1. MEDROL [Concomitant]
     Active Substance: METHYLPREDNISOLONE
  2. DUPIXENT [Suspect]
     Active Substance: DUPILUMAB
     Indication: NASAL POLYPS
     Dosage: 300 MG
     Route: 058
     Dates: start: 20210222, end: 20210222
  3. BENADRYL [Concomitant]
     Active Substance: DIPHENHYDRAMINE HYDROCHLORIDE
  4. DUPIXENT [Suspect]
     Active Substance: DUPILUMAB
     Indication: ASTHMA
     Dosage: 300 MG
     Route: 058
     Dates: start: 20210308

REACTIONS (12)
  - White blood cell count increased [Unknown]
  - Neutrophil count increased [Unknown]
  - Eosinophil count decreased [Unknown]
  - Flushing [Unknown]
  - Rhinitis allergic [Unknown]
  - Urticaria [Unknown]
  - Burning sensation [Unknown]
  - Blood glucose increased [Unknown]
  - Rash [Unknown]
  - Erythema [Unknown]
  - C-reactive protein increased [Unknown]
  - Back pain [Unknown]

NARRATIVE: CASE EVENT DATE: 20210314
